FAERS Safety Report 9159152 (Version 2)
Quarter: 2013Q1

REPORT INFORMATION
  Report Type: Spontaneous
  Country: US (occurrence: None)
  Receive Date: 20130212
  Receipt Date: 20130214
  Transmission Date: 20140127
  Serious: Yes (Other)
  Sender: FDA-Public Use
  Company Number: ADR-2013-00207

PATIENT
  Sex: Female

DRUGS (2)
  1. LIORESAL [Suspect]
     Indication: MUSCLE SPASTICITY
  2. COMPOUND BACLOFEN [Concomitant]

REACTIONS (12)
  - Hypotension [None]
  - Heart rate increased [None]
  - Drug withdrawal syndrome [None]
  - Pyrexia [None]
  - Tremor [None]
  - Dysphagia [None]
  - Muscle spasticity [None]
  - Mental status changes [None]
  - Influenza like illness [None]
  - Pain [None]
  - Hyperhidrosis [None]
  - Medical device complication [None]
